FAERS Safety Report 4393251-6 (Version None)
Quarter: 2004Q3

REPORT INFORMATION
  Report Type: 
  Country: None (occurrence: None)
  Receive Date: 20040702
  Receipt Date: 20040623
  Transmission Date: 20050211
  Serious: Yes (Hospitalization, Other)
  Sender: FDA-Public Use
  Company Number: FR-JNJFOC-20040605930

PATIENT
  Sex: Male

DRUGS (2)
  1. REMICADE [Suspect]
     Indication: POLYARTERITIS NODOSA
     Dosage: INTRAVENOUS
     Route: 042
     Dates: start: 20040618, end: 20040618
  2. CORTICOSTEROIDS [Concomitant]

REACTIONS (3)
  - CONDITION AGGRAVATED [None]
  - GASTROINTESTINAL HAEMORRHAGE [None]
  - POLYARTERITIS NODOSA [None]
